FAERS Safety Report 8842171 (Version 3)
Quarter: 2013Q3

REPORT INFORMATION
  Report Type: Spontaneous
  Country: JP (occurrence: JP)
  Receive Date: 20121016
  Receipt Date: 20130725
  Transmission Date: 20140515
  Serious: Yes (Hospitalization)
  Sender: FDA-Public Use
  Company Number: PHHY2012JP090836

PATIENT
  Age: 61 Year
  Sex: Male

DRUGS (3)
  1. NEORAL [Suspect]
     Indication: MYASTHENIA GRAVIS
     Dosage: 100 MG, DAILY
     Route: 048
  2. GANCICLOVIR [Concomitant]
     Route: 048
  3. CORTICOSTEROID NOS [Concomitant]
     Indication: MYASTHENIA GRAVIS
     Route: 048

REACTIONS (6)
  - Renal failure acute [Recovered/Resolved]
  - Proteinuria [Recovered/Resolved]
  - Nephrotic syndrome [Recovered/Resolved]
  - Glomerulonephritis minimal lesion [Recovered/Resolved]
  - Oliguria [Recovered/Resolved]
  - Weight increased [Recovered/Resolved]
